FAERS Safety Report 14839732 (Version 6)
Quarter: 2021Q1

REPORT INFORMATION
  Report Type: Spontaneous
  Country: DE (occurrence: DE)
  Receive Date: 20180503
  Receipt Date: 20210121
  Transmission Date: 20210419
  Serious: Yes (Hospitalization, Other)
  Sender: FDA-Public Use
  Company Number: DE-JNJFOC-20180424070

PATIENT
  Age: 62 Year
  Sex: Female
  Weight: 58 kg

DRUGS (8)
  1. NIVOLUMAB [Suspect]
     Active Substance: NIVOLUMAB
     Indication: PRODUCT USED FOR UNKNOWN INDICATION
     Dosage: 3 MG/KG, ACCORDING TO THE SCHEME, INJECTION / INFUSION SOLUTION
     Route: 042
  2. METAMIZOLE [Suspect]
     Active Substance: METAMIZOLE
     Indication: PRODUCT USED FOR UNKNOWN INDICATION
     Dosage: 500 MG, QID
     Route: 048
  3. ENOXAPARIN [Concomitant]
     Active Substance: ENOXAPARIN
     Indication: PRODUCT USED FOR UNKNOWN INDICATION
     Dosage: 0.4 ML, QD?ADDITIONAL INFO: 0.4 ML, 0?0?1?0, INJEKTIONS?/INFUSIONSL SUNG ( 0.4 ML, 0?0?1?0, SOLUTION
     Route: 058
  4. IBUPROFEN. [Suspect]
     Active Substance: IBUPROFEN
     Indication: PRODUCT USED FOR UNKNOWN INDICATION
     Dosage: 1DF ? 600 MG, HALF A TABLET THREE TIMES DAILY, 0.5?0.5?0.5?0
     Route: 048
  5. COLECALCIFEROL [Concomitant]
     Active Substance: CHOLECALCIFEROL
     Indication: PRODUCT USED FOR UNKNOWN INDICATION
     Dosage: 1 DF, QD?ADDITIONAL INFO: 1 DF= 500 INTERNATIONAL UNITS, 1?0?0?0, TABLET, ONCE DAILY
     Route: 048
  6. LEVOTHYROXINE SODIUM. [Concomitant]
     Active Substance: LEVOTHYROXINE SODIUM
     Indication: PRODUCT USED FOR UNKNOWN INDICATION
     Dosage: 100 G, QD,, 1?0?0?0, TABLET
     Route: 048
  7. DENOSUMAB [Concomitant]
     Active Substance: DENOSUMAB
     Indication: PRODUCT USED FOR UNKNOWN INDICATION
     Dosage: 120 MG, UNK?ADDITIONAL INFO: 120 MG, NACH SCHEMA, INJEKTIONS?/INFUSIONSL SUNG (120 MG, ACCORDING TO
     Route: 042
  8. LACTULOSE. [Concomitant]
     Active Substance: LACTULOSE
     Indication: PRODUCT USED FOR UNKNOWN INDICATION
     Dosage: 6.5 G, QD??6.5 G, 1?0?0?0, JUICE
     Route: 048

REACTIONS (6)
  - Pruritus [Unknown]
  - Dyspnoea [Unknown]
  - General physical health deterioration [Unknown]
  - Dermatitis bullous [Unknown]
  - Blister [Unknown]
  - Rash [Unknown]
